FAERS Safety Report 10169385 (Version 1)
Quarter: 2014Q2

REPORT INFORMATION
  Report Type: Spontaneous
  Country: CH (occurrence: CH)
  Receive Date: 20140513
  Receipt Date: 20140513
  Transmission Date: 20141212
  Serious: Yes (Other)
  Sender: FDA-Public Use
  Company Number: CH-MALLINCKRODT-T201402169

PATIENT
  Age: 6 Year
  Sex: Male

DRUGS (5)
  1. OFIRMEV [Suspect]
     Indication: PRODUCT USED FOR UNKNOWN INDICATION
     Dosage: 300 MG 4/1 DAY
     Route: 041
     Dates: start: 20140330, end: 20140404
  2. TEICOPLANIN [Suspect]
     Indication: PRODUCT USED FOR UNKNOWN INDICATION
     Dosage: 10 MG/KG 2/1 DAY
     Route: 042
     Dates: start: 20140330, end: 20140402
  3. MERONEM [Suspect]
     Indication: PRODUCT USED FOR UNKNOWN INDICATION
     Dosage: 28 MG/KG 3/1 DAY
     Route: 042
     Dates: start: 20140331, end: 20140403
  4. VFEND [Suspect]
     Indication: PRODUCT USED FOR UNKNOWN INDICATION
     Dosage: 160 MG 2/1 DAY
     Route: 065
     Dates: start: 20140331, end: 20140403
  5. BACTRIM [Concomitant]
     Dosage: UNK
     Dates: start: 20140329

REACTIONS (1)
  - Hepatitis [Recovering/Resolving]
